FAERS Safety Report 14322317 (Version 1)
Quarter: 2017Q4

REPORT INFORMATION
  Report Type: Spontaneous
  Country: US (occurrence: US)
  Receive Date: 20171225
  Receipt Date: 20171225
  Transmission Date: 20180321
  Serious: Yes (Other)
  Sender: FDA-Public Use
  Company Number: US-CONCORDIA PHARMACEUTICALS INC.-GSH201712-006608

PATIENT
  Age: 18 Year
  Sex: Female

DRUGS (2)
  1. ZONEGRAN [Suspect]
     Active Substance: ZONISAMIDE
     Indication: EPILEPSY
     Dates: start: 20171203, end: 20171205
  2. LAMICTAL [Concomitant]
     Active Substance: LAMOTRIGINE
     Indication: EPILEPSY

REACTIONS (10)
  - Headache [Recovered/Resolved]
  - Migraine [Recovered/Resolved]
  - Myalgia [Recovered/Resolved]
  - Epileptic aura [Recovered/Resolved]
  - Product quality issue [Recovered/Resolved]
  - Muscle fatigue [Recovered/Resolved]
  - Confusional state [Recovered/Resolved]
  - Seizure [Recovered/Resolved]
  - Feeling abnormal [Recovered/Resolved]
  - Fatigue [Recovered/Resolved]

NARRATIVE: CASE EVENT DATE: 20171203
